FAERS Safety Report 24720290 (Version 1)
Quarter: 2024Q4

REPORT INFORMATION
  Report Type: Spontaneous
  Country: US (occurrence: US)
  Receive Date: 20241211
  Receipt Date: 20241211
  Transmission Date: 20250114
  Serious: No
  Sender: STALLERGENES
  Company Number: US-AIMMUNE THERAPEUTICS, INC.-2024AIMT00133

PATIENT
  Age: 9 Year
  Sex: Male

DRUGS (5)
  1. PALFORZIA [Suspect]
     Active Substance: PEANUT
     Indication: Food allergy
     Dosage: IDE (0.5-6MG), ONCE
     Dates: start: 202312, end: 202312
  2. PALFORZIA [Suspect]
     Active Substance: PEANUT
     Dosage: 12MG, 1X/DAY
  3. PALFORZIA [Suspect]
     Active Substance: PEANUT
     Dosage: 12MG, ONCE, LAST DOSE PRIOR TO EVENT
  4. PALFORZIA [Suspect]
     Active Substance: PEANUT
     Dosage: 6MG, 1X/DAY, DOSE DECREASED
     Dates: start: 202403
  5. PALFORZIA [Suspect]
     Active Substance: PEANUT
     Dosage: 6MG, ONCE, LAST DOSE PRIOR THE EVETS OF DISCOMFORT AND STOMACH SYMPTOMS

REACTIONS (2)
  - Nausea [Unknown]
  - Abdominal discomfort [Not Recovered/Not Resolved]
